FAERS Safety Report 10186282 (Version 1)
Quarter: 2014Q2

REPORT INFORMATION
  Report Type: Spontaneous
  Country: JP (occurrence: JP)
  Receive Date: 20140521
  Receipt Date: 20140521
  Transmission Date: 20141212
  Serious: Yes (Other)
  Sender: FDA-Public Use
  Company Number: JP-WATSON-2014-10610

PATIENT
  Age: 56 Year
  Sex: Female

DRUGS (8)
  1. SULFASALAZINE (WATSON LABORATORIES) [Suspect]
     Indication: RHEUMATOID ARTHRITIS
     Dosage: UNKNOWN
     Route: 065
     Dates: start: 20100609
  2. RIFAMPICIN (UNKNOWN) [Suspect]
     Indication: PULMONARY TUBERCULOSIS
     Dosage: UNKNOWN
     Route: 065
     Dates: start: 20100604
  3. LEVOFLOXACIN (UNKNOWN) [Suspect]
     Indication: PULMONARY TUBERCULOSIS
     Dosage: UNKNOWN
     Route: 065
     Dates: start: 20100604
  4. ISONIAZID [Suspect]
     Indication: PULMONARY TUBERCULOSIS
     Dosage: UNKNOWN
     Route: 065
     Dates: start: 20100908
  5. STREPTOMYCIN [Suspect]
     Indication: PULMONARY TUBERCULOSIS
     Dosage: UNKNOWN
     Route: 065
     Dates: start: 20100604
  6. ETHAMBUTOL [Suspect]
     Indication: PULMONARY TUBERCULOSIS
     Dosage: UNKNOWN
     Route: 065
     Dates: start: 20100604
  7. PREDNISOLONE [Concomitant]
     Indication: RHEUMATOID ARTHRITIS
     Dosage: 4 MG, UNK
     Route: 048
     Dates: start: 200903
  8. PREDNISOLONE [Concomitant]
     Dosage: 25 MG, UNK
     Route: 048
     Dates: start: 20100728

REACTIONS (3)
  - Drug reaction with eosinophilia and systemic symptoms [Recovering/Resolving]
  - Drug hypersensitivity [Recovering/Resolving]
  - Alopecia [Recovering/Resolving]
